FAERS Safety Report 4929185-5 (Version None)
Quarter: 2006Q1

REPORT INFORMATION
  Report Type: 
  Country: None (occurrence: None)
  Receive Date: 20060301
  Receipt Date: 20060102
  Transmission Date: 20060701
  Serious: Yes (Life-Threatening)
  Sender: FDA-Public Use
  Company Number: 2006SE00034

PATIENT
  Age: 21329 Day
  Sex: Male
  Weight: 71 kg

DRUGS (13)
  1. BLOPRESS TABLETS 8 [Suspect]
     Indication: HYPERTENSION
     Route: 048
     Dates: start: 20051209, end: 20051209
  2. NORVASC [Suspect]
     Indication: HYPERTENSION
     Route: 048
     Dates: start: 20051204, end: 20051208
  3. NORVASC [Suspect]
     Route: 048
     Dates: start: 20051209, end: 20051209
  4. NORVASC [Suspect]
     Route: 048
     Dates: start: 20051210
  5. MYONAL [Concomitant]
     Route: 048
     Dates: start: 20020901
  6. MAGNESIUM OXIDE [Concomitant]
     Route: 048
     Dates: start: 20020901
  7. ASPIRIN [Concomitant]
     Route: 048
     Dates: start: 20020901
  8. URINORM [Concomitant]
     Route: 048
     Dates: start: 20020901
  9. GASTER D [Concomitant]
     Route: 048
     Dates: start: 20020901
  10. LIPITOR [Concomitant]
     Route: 048
     Dates: start: 20020901
  11. LUDIOMIL [Concomitant]
     Route: 048
     Dates: start: 20020901
  12. NEUROTROPIN [Concomitant]
     Route: 048
     Dates: start: 20020901
  13. HALCION [Concomitant]
     Route: 048
     Dates: start: 20020901

REACTIONS (6)
  - BLOOD ALDOSTERONE INCREASED [None]
  - INAPPROPRIATE SCHEDULE OF DRUG ADMINISTRATION [None]
  - LOSS OF CONSCIOUSNESS [None]
  - PAIN IN EXTREMITY [None]
  - RENOVASCULAR HYPERTENSION [None]
  - SYNCOPE [None]
